FAERS Safety Report 8202908-8 (Version None)
Quarter: 2012Q1

REPORT INFORMATION
  Report Type: 
  Country: None (occurrence: None)
  Receive Date: 20120312
  Receipt Date: 20120306
  Transmission Date: 20120608
  Serious: Yes (Death, Hospitalization)
  Sender: FDA-Public Use
  Company Number: CL-GILEAD-2012-0050605

PATIENT
  Age: 27 Year
  Sex: Male

DRUGS (4)
  1. TRUVADA [Suspect]
     Indication: HEPATITIS B
  2. RALTEGRAVIR [Suspect]
     Indication: HIV INFECTION
  3. TRUVADA [Suspect]
     Indication: HIV INFECTION
  4. RALTEGRAVIR [Suspect]
     Indication: HEPATITIS B

REACTIONS (1)
  - NO ADVERSE EVENT [None]
